FAERS Safety Report 9852332 (Version 1)
Quarter: 2014Q1

REPORT INFORMATION
  Report Type: Spontaneous
  Country: US (occurrence: None)
  Receive Date: 20140128
  Receipt Date: 20140128
  Transmission Date: 20141002
  Serious: Yes (Hospitalization)
  Sender: FDA-Public Use
  Company Number: None

PATIENT
  Age: 81 Year
  Sex: Female
  Weight: 63.5 kg

DRUGS (8)
  1. PROLIA [Suspect]
     Indication: OSTEOPOROSIS
     Dates: start: 20131205, end: 20131205
  2. TYLENOL [Concomitant]
  3. ADVIL [Concomitant]
  4. CLARITIN [Concomitant]
  5. LORTEL [Concomitant]
  6. PREVACID [Concomitant]
  7. PREDNISONE [Concomitant]
  8. CARVEDILOL [Concomitant]

REACTIONS (7)
  - Constipation [None]
  - Diarrhoea [None]
  - Vomiting [None]
  - Generalised erythema [None]
  - Muscle spasms [None]
  - Hypoaesthesia [None]
  - Hypoaesthesia [None]
